FAERS Safety Report 4846418-4 (Version None)
Quarter: 2005Q4

REPORT INFORMATION
  Report Type: 
  Country: None (occurrence: None)
  Receive Date: 20051128
  Receipt Date: 20051114
  Transmission Date: 20060501
  Serious: Yes (Death, Hospitalization)
  Sender: FDA-Public Use
  Company Number: THYM-10763

PATIENT
  Age: 66 Year
  Sex: Male
  Weight: 80.9 kg

DRUGS (12)
  1. THYMOGLOBULIN [Suspect]
     Indication: GRAFT VERSUS HOST DISEASE
     Dates: start: 20050823, end: 20050825
  2. THYMOGLOBULIN [Suspect]
     Indication: PROPHYLAXIS
     Dates: start: 20050823, end: 20050825
  3. MELPHALAN [Concomitant]
  4. FLUDARABINE [Concomitant]
  5. VELCADE [Concomitant]
  6. TACROLIMUS [Concomitant]
  7. VALTREX [Concomitant]
  8. ADVAIR DISKUS 100/50 [Concomitant]
  9. SPIRAVA [Concomitant]
  10. PROTONIX [Concomitant]
  11. THORAZINE [Concomitant]
  12. COREG [Concomitant]

REACTIONS (15)
  - CHRONIC OBSTRUCTIVE PULMONARY DISEASE [None]
  - CONDITION AGGRAVATED [None]
  - FLUID OVERLOAD [None]
  - GENERAL PHYSICAL HEALTH DETERIORATION [None]
  - LUNG INFECTION [None]
  - OEDEMA PERIPHERAL [None]
  - PLEURAL EFFUSION [None]
  - PNEUMONIA [None]
  - PNEUMONITIS [None]
  - PSEUDOMONAS INFECTION [None]
  - RASH [None]
  - RESPIRATORY FAILURE [None]
  - SPUTUM CULTURE POSITIVE [None]
  - STEM CELL TRANSPLANT [None]
  - STENOTROPHOMONAS INFECTION [None]
